FAERS Safety Report 18299060 (Version 1)
Quarter: 2020Q3

REPORT INFORMATION
  Report Type: Other
  Country: US (occurrence: US)
  Receive Date: 20200923
  Receipt Date: 20200923
  Transmission Date: 20201103
  Serious: Yes (Other)
  Sender: FDA-Public Use
  Company Number: US-ROCHE-2158075

PATIENT
  Age: 39 Year
  Sex: Female
  Weight: 56.3 kg

DRUGS (12)
  1. SOLU?MEDROL [Concomitant]
     Active Substance: METHYLPREDNISOLONE SODIUM SUCCINATE
     Dosage: LAST THURSDAY, FRIDAY AND SATURDAY ;ONGOING: NO
  2. OCREVUS [Suspect]
     Active Substance: OCRELIZUMAB
     Indication: RELAPSING-REMITTING MULTIPLE SCLEROSIS
     Dosage: 600 MG DOSE IN TWO WEEKS AND THEN 600 ONCE IN 6 MONTHS.?NEXT DATE OF TREATMENT: 18/JUL/2017, 03/JAN/
     Route: 042
     Dates: start: 20170703
  3. PAXIL [Concomitant]
     Active Substance: PAROXETINE HYDROCHLORIDE
     Indication: DEPRESSION
     Route: 048
     Dates: start: 202002
  4. ADDERALL [Concomitant]
     Active Substance: AMPHETAMINE ASPARTATE\AMPHETAMINE SULFATE\DEXTROAMPHETAMINE SACCHARATE\DEXTROAMPHETAMINE SULFATE
     Indication: FATIGUE
     Route: 048
     Dates: start: 2017
  5. BUPROPION. [Concomitant]
     Active Substance: BUPROPION
     Indication: HOT FLUSH
     Route: 048
     Dates: start: 2016
  6. TOLTERODINE [Concomitant]
     Active Substance: TOLTERODINE
     Indication: URINARY INCONTINENCE
     Route: 048
     Dates: start: 202005
  7. BACLOFEN. [Concomitant]
     Active Substance: BACLOFEN
     Indication: MUSCLE SPASMS
     Route: 048
     Dates: start: 2018
  8. TRULANCE [Concomitant]
     Active Substance: PLECANATIDE
     Route: 048
     Dates: start: 201912
  9. OMEPRAZOLE. [Concomitant]
     Active Substance: OMEPRAZOLE
     Indication: CROHN^S DISEASE
     Route: 048
     Dates: start: 201912
  10. TIZANIDINE. [Concomitant]
     Active Substance: TIZANIDINE
     Indication: MUSCLE SPASMS
     Dosage: TAKES 1 TO 2 TABLETS TWICE A DAY AS NEEDED
     Route: 048
  11. LATUDA [Concomitant]
     Active Substance: LURASIDONE HYDROCHLORIDE
     Route: 048
     Dates: start: 201006
  12. CLONAZEPAM. [Concomitant]
     Active Substance: CLONAZEPAM
     Indication: ANXIETY
     Route: 048
     Dates: start: 2016

REACTIONS (25)
  - Fatigue [Not Recovered/Not Resolved]
  - Dehydration [Recovered/Resolved]
  - Feeling abnormal [Not Recovered/Not Resolved]
  - Memory impairment [Not Recovered/Not Resolved]
  - Pruritus [Unknown]
  - Muscle spasms [Not Recovered/Not Resolved]
  - Urinary retention [Recovered/Resolved]
  - Stress [Unknown]
  - Muscle fatigue [Not Recovered/Not Resolved]
  - Gastritis [Not Recovered/Not Resolved]
  - Asthenia [Recovering/Resolving]
  - Headache [Not Recovered/Not Resolved]
  - Rash [Recovered/Resolved]
  - Balance disorder [Not Recovered/Not Resolved]
  - Pain [Not Recovered/Not Resolved]
  - Trigeminal neuralgia [Recovering/Resolving]
  - Diarrhoea [Not Recovered/Not Resolved]
  - Intentional product misuse [Unknown]
  - Relapsing-remitting multiple sclerosis [Recovered/Resolved]
  - Pneumonia [Recovered/Resolved]
  - Dizziness [Recovered/Resolved]
  - Tremor [Not Recovered/Not Resolved]
  - Loss of bladder sensation [Recovered/Resolved]
  - Somnolence [Not Recovered/Not Resolved]
  - Off label use [Unknown]

NARRATIVE: CASE EVENT DATE: 2018
